FAERS Safety Report 22127536 (Version 2)
Quarter: 2023Q2

REPORT INFORMATION
  Report Type: Report from Study
  Country: BR (occurrence: BR)
  Receive Date: 20230323
  Receipt Date: 20230404
  Transmission Date: 20230721
  Serious: Yes (Congenital Anomaly)
  Sender: FDA-Public Use
  Company Number: BR-BIOGEN-2023BI01194604

PATIENT

DRUGS (1)
  1. TYSABRI [Suspect]
     Active Substance: NATALIZUMAB
     Indication: Maternal exposure timing unspecified
     Route: 050
     Dates: start: 2013, end: 202208

REACTIONS (4)
  - Congenital musculoskeletal disorder of spine [Recovered/Resolved]
  - Heart disease congenital [Recovered/Resolved]
  - Pleural effusion [Recovered/Resolved]
  - Foetal exposure during pregnancy [Recovered/Resolved]

NARRATIVE: CASE EVENT DATE: 20200801
